FAERS Safety Report 6232476-1 (Version None)
Quarter: 2009Q2

REPORT INFORMATION
  Report Type: 
  Country: None (occurrence: None)
  Receive Date: 20090615
  Receipt Date: 20090615
  Transmission Date: 20091009
  Serious: Yes (Other)
  Sender: FDA-Public Use
  Company Number: None

PATIENT
  Age: 42 Year
  Sex: Male
  Weight: 91.173 kg

DRUGS (7)
  1. ELAVIL [Suspect]
     Indication: DEPRESSION
     Dosage: 150 MG
     Dates: start: 20010519, end: 20020519
  2. DARVON [Suspect]
     Indication: BACK PAIN
     Dosage: 195 MG
     Dates: start: 20010519, end: 20020519
  3. DARVON [Suspect]
     Indication: HYPERTENSION
     Dosage: 195 MG
     Dates: start: 20010519, end: 20020519
  4. CLONIDINE [Suspect]
     Indication: BACK PAIN
     Dosage: .2MG
     Dates: start: 20010519, end: 20020519
  5. CLONIDINE [Suspect]
     Indication: HYPERTENSION
     Dosage: .2MG
     Dates: start: 20010519, end: 20020519
  6. FLEXERIL [Suspect]
     Indication: BACK PAIN
     Dosage: 10 MG
     Dates: start: 20010519, end: 20020519
  7. FLEXERIL [Suspect]
     Indication: HYPERTENSION
     Dosage: 10 MG
     Dates: start: 20010519, end: 20020519

REACTIONS (8)
  - ANXIETY [None]
  - CONFUSIONAL STATE [None]
  - DELIRIUM [None]
  - DRUG INTERACTION [None]
  - HALLUCINATIONS, MIXED [None]
  - INCORRECT DOSE ADMINISTERED [None]
  - MENTAL DISORDER [None]
  - SOMNAMBULISM [None]
